FAERS Safety Report 6963986-7 (Version None)
Quarter: 2010Q3

REPORT INFORMATION
  Report Type: 
  Country: None (occurrence: None)
  Receive Date: 20100902
  Receipt Date: 20100902
  Transmission Date: 20110219
  Serious: Yes (Other)
  Sender: FDA-Public Use
  Company Number: None

PATIENT
  Sex: Male
  Weight: 90.7194 kg

DRUGS (2)
  1. RISPERDAL [Suspect]
     Indication: SCHIZOPHRENIA
     Dosage: 1 MG BID P.O.
     Route: 048
     Dates: start: 20100401, end: 20100715
  2. REMERON [Concomitant]

REACTIONS (2)
  - HEPATOMEGALY [None]
  - OEDEMA PERIPHERAL [None]
